FAERS Safety Report 8491520-1 (Version None)
Quarter: 2012Q3

REPORT INFORMATION
  Report Type: 
  Country: None (occurrence: None)
  Receive Date: 20120706
  Receipt Date: 20120702
  Transmission Date: 20120928
  Serious: No
  Sender: FDA-Public Use
  Company Number: US-FRI-1000036800

PATIENT
  Age: 55 Year
  Sex: Female

DRUGS (8)
  1. CLONIDINE [Concomitant]
     Indication: HYPERTENSION
  2. LOSARTAN POTASSIUM [Concomitant]
     Indication: HYPERTENSION
  3. LEXAPRO [Suspect]
     Dosage: 20 MG
     Route: 048
     Dates: start: 20110101, end: 20120601
  4. FOLIC ACID [Concomitant]
     Dates: end: 20120601
  5. SUBOXONE [Concomitant]
     Indication: ANALGESIC INTERVENTION SUPPORTIVE THERAPY
  6. LEXAPRO [Suspect]
     Indication: DEPRESSION
     Dosage: 10 MG
     Route: 048
     Dates: end: 20110101
  7. POTASSIUM [Concomitant]
  8. VITAMIN B1 TAB [Concomitant]
     Dates: end: 20120601

REACTIONS (4)
  - CRYING [None]
  - PARAESTHESIA [None]
  - DEPRESSION [None]
  - IRRITABILITY [None]
